FAERS Safety Report 19064646 (Version 1)
Quarter: 2021Q1

REPORT INFORMATION
  Report Type: Spontaneous
  Country: CN (occurrence: CN)
  Receive Date: 20210327
  Receipt Date: 20210327
  Transmission Date: 20210420
  Serious: Yes (Other)
  Sender: FDA-Public Use
  Company Number: CN-ROCHE-2797507

PATIENT
  Age: 59 Year
  Sex: Male

DRUGS (24)
  1. METHOTREXATE. [Concomitant]
     Active Substance: METHOTREXATE
     Dates: start: 20200619
  2. TEMOZOLOMIDE. [Concomitant]
     Active Substance: TEMOZOLOMIDE
     Dates: start: 20200619
  3. TEMOZOLOMIDE. [Concomitant]
     Active Substance: TEMOZOLOMIDE
     Dates: start: 20200629
  4. MABTHERA [Suspect]
     Active Substance: RITUXIMAB
     Indication: DIFFUSE LARGE B-CELL LYMPHOMA
     Route: 041
  5. CYCLOPHOSPHAMIDE. [Concomitant]
     Active Substance: CYCLOPHOSPHAMIDE
     Indication: DIFFUSE LARGE B-CELL LYMPHOMA
  6. METHOTREXATE. [Concomitant]
     Active Substance: METHOTREXATE
     Dates: start: 20200608
  7. TEMOZOLOMIDE. [Concomitant]
     Active Substance: TEMOZOLOMIDE
     Dates: start: 20200608
  8. MANNITOL. [Concomitant]
     Active Substance: MANNITOL
     Indication: DEHYDRATION
  9. DOXORUBICIN [Concomitant]
     Active Substance: DOXORUBICIN
     Indication: DIFFUSE LARGE B-CELL LYMPHOMA
  10. METHOTREXATE. [Concomitant]
     Active Substance: METHOTREXATE
     Indication: DIFFUSE LARGE B-CELL LYMPHOMA
     Dates: start: 20200509
  11. METHOTREXATE. [Concomitant]
     Active Substance: METHOTREXATE
     Dates: start: 20200819
  12. LENALIDOMIDE [Concomitant]
     Active Substance: LENALIDOMIDE
     Dates: start: 20200531
  13. VINCRISTINE [Concomitant]
     Active Substance: VINCRISTINE
     Indication: DIFFUSE LARGE B-CELL LYMPHOMA
  14. METHOTREXATE. [Concomitant]
     Active Substance: METHOTREXATE
     Dates: start: 20200531
  15. LENALIDOMIDE [Concomitant]
     Active Substance: LENALIDOMIDE
     Dates: start: 20200608
  16. ZANUBRUTINIB [Concomitant]
     Active Substance: ZANUBRUTINIB
     Indication: DIFFUSE LARGE B-CELL LYMPHOMA
  17. PREDNISONE. [Concomitant]
     Active Substance: PREDNISONE
     Indication: DIFFUSE LARGE B-CELL LYMPHOMA
  18. LENALIDOMIDE [Concomitant]
     Active Substance: LENALIDOMIDE
     Dates: start: 20200819
  19. TEMOZOLOMIDE. [Concomitant]
     Active Substance: TEMOZOLOMIDE
     Dates: start: 20200819
  20. LENALIDOMIDE [Concomitant]
     Active Substance: LENALIDOMIDE
     Indication: DIFFUSE LARGE B-CELL LYMPHOMA
     Dates: start: 20200509
  21. LENALIDOMIDE [Concomitant]
     Active Substance: LENALIDOMIDE
     Dosage: MAINTENANCE THERAPY
     Dates: start: 20200619
  22. METHOTREXATE. [Concomitant]
     Active Substance: METHOTREXATE
     Dates: start: 20200629
  23. LENALIDOMIDE [Concomitant]
     Active Substance: LENALIDOMIDE
     Dates: start: 20200629
  24. TEMOZOLOMIDE. [Concomitant]
     Active Substance: TEMOZOLOMIDE
     Indication: DIFFUSE LARGE B-CELL LYMPHOMA
     Dates: start: 20200531

REACTIONS (6)
  - Gastrointestinal haemorrhage [Recovering/Resolving]
  - Epilepsy [Recovered/Resolved]
  - Myelosuppression [Recovering/Resolving]
  - Pyrexia [Recovering/Resolving]
  - Mouth ulceration [Recovering/Resolving]
  - Gastrointestinal injury [Recovering/Resolving]
